FAERS Safety Report 10047441 (Version 1)
Quarter: 2014Q1

REPORT INFORMATION
  Report Type: Spontaneous
  Country: US (occurrence: None)
  Receive Date: 20140328
  Receipt Date: 20140328
  Transmission Date: 20141002
  Serious: Yes (Other)
  Sender: FDA-Public Use
  Company Number: None

PATIENT
  Age: 61 Year
  Sex: Female

DRUGS (11)
  1. COPAXONE [Suspect]
     Indication: MULTIPLE SCLEROSIS
     Route: 058
     Dates: start: 20111206, end: 20140326
  2. FOSAMAX [Concomitant]
  3. VITAMIN D3 [Concomitant]
  4. CALCIUM [Concomitant]
  5. OMEGA3 [Concomitant]
  6. PROVIGIL [Concomitant]
  7. CRESTOR [Concomitant]
  8. COQ-10 [Concomitant]
  9. LIPOIC CAF [Concomitant]
  10. CHELATED MG [Concomitant]
  11. GLUCOSAMINE [Concomitant]

REACTIONS (1)
  - Nuclear magnetic resonance imaging abnormal [None]
